FAERS Safety Report 11275292 (Version 2)
Quarter: 2015Q3

REPORT INFORMATION
  Report Type: Report from Study
  Country: BR (occurrence: BR)
  Receive Date: 20150716
  Receipt Date: 20150828
  Transmission Date: 20151125
  Serious: Yes (Death, Hospitalization)
  Sender: FDA-Public Use
  Company Number: BR-ABBVIE-15K-020-1426148-00

PATIENT
  Age: 57 Year
  Sex: Male

DRUGS (1)
  1. HUMIRA [Suspect]
     Active Substance: ADALIMUMAB
     Indication: CROHN^S DISEASE
     Route: 058
     Dates: start: 20150625

REACTIONS (6)
  - Dyspnoea [Fatal]
  - Crohn^s disease [Fatal]
  - Blood pressure decreased [Fatal]
  - Hypothermia [Fatal]
  - Hypophagia [Fatal]
  - Infection [Fatal]

NARRATIVE: CASE EVENT DATE: 2015
